FAERS Safety Report 8378113-1 (Version None)
Quarter: 2012Q2

REPORT INFORMATION
  Report Type: 
  Country: None (occurrence: None)
  Receive Date: 20120522
  Receipt Date: 20120514
  Transmission Date: 20120825
  Serious: Yes (Other)
  Sender: FDA-Public Use
  Company Number: PT-ACTELION-A-CH2012-65673

PATIENT
  Sex: Female
  Weight: 37 kg

DRUGS (3)
  1. ANTIDEPRESSANTS [Concomitant]
  2. ANTIEPILEPTICS [Concomitant]
  3. ZAVESCA [Suspect]
     Indication: NIEMANN-PICK DISEASE
     Dosage: 200 MG, BID
     Route: 048
     Dates: start: 20050316

REACTIONS (1)
  - CONVULSION [None]
